FAERS Safety Report 9585975 (Version 2)
Quarter: 2013Q4

REPORT INFORMATION
  Report Type: Spontaneous
  Country: US (occurrence: None)
  Receive Date: 20131001
  Receipt Date: 20131023
  Transmission Date: 20140711
  Serious: Yes (Death, Hospitalization)
  Sender: FDA-Public Use
  Company Number: 2013US002543

PATIENT
  Age: 41 Year
  Sex: Male
  Weight: 63 kg

DRUGS (5)
  1. ICLUSIG [Suspect]
     Indication: LEUKAEMIA
     Route: 048
     Dates: start: 20130307, end: 20130814
  2. ACYCLOVIR (ACYCLOVIR) [Concomitant]
  3. HYDREA (HYDROXYCARBAMIDE) [Concomitant]
  4. NYSTATIN (NYSTATIN) [Concomitant]
  5. SYNRIBO (OMACETAXINE) [Concomitant]

REACTIONS (10)
  - Pneumonia [None]
  - Sinus tachycardia [None]
  - Lung consolidation [None]
  - Lymphadenopathy [None]
  - Pleural effusion [None]
  - Splenomegaly [None]
  - Sepsis [None]
  - Immunosuppression [None]
  - Renal failure [None]
  - Multi-organ failure [None]
